FAERS Safety Report 25294542 (Version 3)
Quarter: 2025Q4

REPORT INFORMATION
  Report Type: Spontaneous
  Country: US (occurrence: US)
  Receive Date: 20250511
  Receipt Date: 20251012
  Transmission Date: 20260118
  Serious: No
  Sender: SANOFI AVENTIS
  Company Number: US-SA-2025SA125215

PATIENT
  Age: 62 Year
  Sex: Female

DRUGS (1)
  1. DUPIXENT [Suspect]
     Active Substance: DUPILUMAB
     Indication: Chronic obstructive pulmonary disease
     Dosage: 300 MG, QOW
     Route: 058
     Dates: start: 202503

REACTIONS (8)
  - Muscle spasms [Not Recovered/Not Resolved]
  - Upper respiratory tract infection [Unknown]
  - Dyspnoea exertional [Unknown]
  - Condition aggravated [Unknown]
  - Chronic obstructive pulmonary disease [Recovered/Resolved]
  - Product dose omission in error [Unknown]
  - Dyspnoea [Recovered/Resolved]
  - Sleep-related breathing disorder [Recovered/Resolved]

NARRATIVE: CASE EVENT DATE: 20250101
